FAERS Safety Report 6581323-7 (Version None)
Quarter: 2010Q1

REPORT INFORMATION
  Report Type: 
  Country: None (occurrence: None)
  Receive Date: 20100215
  Receipt Date: 20090807
  Transmission Date: 20100710
  Serious: Yes (Hospitalization, Other)
  Sender: FDA-Public Use
  Company Number: US-JNJFOC-20090406268

PATIENT
  Sex: Female

DRUGS (1)
  1. LEVAQUIN [Suspect]
     Indication: CYSTITIS

REACTIONS (3)
  - DEPRESSION [None]
  - INFECTIVE TENOSYNOVITIS [None]
  - TENDON RUPTURE [None]
